FAERS Safety Report 8499643-8 (Version None)
Quarter: 2012Q3

REPORT INFORMATION
  Report Type: 
  Country: None (occurrence: None)
  Receive Date: 20120710
  Receipt Date: 20120627
  Transmission Date: 20120928
  Serious: Yes (Hospitalization, Other)
  Sender: FDA-Public Use
  Company Number: JP-ASTELLAS-2012US006025

PATIENT
  Sex: Female
  Weight: 52 kg

DRUGS (11)
  1. GEMZAR [Suspect]
     Indication: ADENOCARCINOMA PANCREAS
     Dosage: 1000 MG/M2, WEEKLY
     Route: 042
     Dates: start: 20110930, end: 20111007
  2. GEMZAR [Suspect]
     Dosage: 1000 MG/M2, WEEKLY
     Route: 042
     Dates: start: 20111114, end: 20111128
  3. RABEPRAZOLE SODIUM [Concomitant]
     Indication: PRODUCT USED FOR UNKNOWN INDICATION
     Dosage: 10 MG, UID/QD
     Route: 048
  4. LEVOFLOXACIN [Concomitant]
     Indication: PRODUCT USED FOR UNKNOWN INDICATION
     Dosage: 500 MG, UID/QD
     Route: 048
     Dates: start: 20111206, end: 20111208
  5. GEMZAR [Suspect]
     Dosage: 1000 MG/M2, WEEKLY
     Route: 042
     Dates: start: 20111024, end: 20111031
  6. SENNOSIDE                          /00571901/ [Concomitant]
     Indication: PRODUCT USED FOR UNKNOWN INDICATION
     Dosage: 24 MG, UNKNOWN/D
     Route: 048
  7. TARCEVA [Suspect]
     Indication: ADENOCARCINOMA PANCREAS
     Dosage: 100 MG, UID/QD
     Route: 048
     Dates: start: 20110930, end: 20111209
  8. REBAMIPIDE [Concomitant]
     Indication: PRODUCT USED FOR UNKNOWN INDICATION
     Dosage: 300 MG, UID/QD
     Route: 048
  9. MAGMITT [Concomitant]
     Indication: PRODUCT USED FOR UNKNOWN INDICATION
     Dosage: 1.5 G, UID/QD
     Route: 048
     Dates: start: 20111004
  10. LOXOPROFEN [Concomitant]
     Indication: PRODUCT USED FOR UNKNOWN INDICATION
     Dosage: 60 MG, UNKNOWN/D
     Route: 048
     Dates: start: 20111004
  11. GOODMIN [Concomitant]
     Indication: PRODUCT USED FOR UNKNOWN INDICATION
     Dosage: 0.25 MG, TOTAL DOSE
     Route: 048

REACTIONS (12)
  - DERMATITIS ACNEIFORM [None]
  - ASPARTATE AMINOTRANSFERASE INCREASED [None]
  - ALANINE AMINOTRANSFERASE INCREASED [None]
  - PARONYCHIA [None]
  - PYREXIA [None]
  - NEUTROPHIL COUNT DECREASED [None]
  - PLATELET COUNT DECREASED [None]
  - INTERSTITIAL LUNG DISEASE [None]
  - DIARRHOEA [None]
  - STOMATITIS [None]
  - DECREASED APPETITE [None]
  - WHITE BLOOD CELL COUNT DECREASED [None]
